FAERS Safety Report 22295376 (Version 4)
Quarter: 2024Q3

REPORT INFORMATION
  Report Type: Spontaneous
  Country: US (occurrence: US)
  Receive Date: 20230508
  Receipt Date: 20240912
  Transmission Date: 20241016
  Serious: Yes (Other)
  Sender: PFIZER
  Company Number: US-PFIZER INC-PV202300080260

PATIENT
  Age: 70 Year
  Sex: Male

DRUGS (6)
  1. BRAFTOVI [Suspect]
     Active Substance: ENCORAFENIB
     Indication: Metastatic malignant melanoma
     Dosage: 6 X 75 MG CAPSULES, 1X/DAY
     Route: 048
  2. MEKTOVI [Suspect]
     Active Substance: BINIMETINIB
     Indication: Metastatic malignant melanoma
     Dosage: 3 X 15 MG TABLETS, 2X/DAY
     Route: 048
  3. LIPITOR [Concomitant]
     Active Substance: ATORVASTATIN CALCIUM
     Indication: Blood cholesterol increased
     Dosage: 40 MG, 1X/DAY
     Route: 048
  4. NITROSTAT [Concomitant]
     Active Substance: NITROGLYCERIN
     Indication: Angina pectoris
     Dosage: 0.4 MG, AS NEEDED (PLACE 1 TABLET (0.4 MG TOTAL) UNDER THE TONGUE EVERY 5 MINUTES AS NEEDED)
     Route: 060
  5. NITROSTAT [Concomitant]
     Active Substance: NITROGLYCERIN
     Indication: Arteriosclerosis
  6. ALTACE [Concomitant]
     Active Substance: RAMIPRIL
     Indication: Hypertension
     Dosage: 5 MG, 1X/DAY
     Route: 048

REACTIONS (5)
  - Lyme disease [Unknown]
  - Neoplasm progression [Unknown]
  - Abdominal pain [Recovered/Resolved]
  - Nausea [Unknown]
  - Hypoacusis [Not Recovered/Not Resolved]
